FAERS Safety Report 24939698 (Version 1)
Quarter: 2025Q1

REPORT INFORMATION
  Report Type: Report from Study
  Country: CA (occurrence: CA)
  Receive Date: 20250207
  Receipt Date: 20250207
  Transmission Date: 20250409
  Serious: Yes (Other)
  Sender: ABBVIE
  Company Number: CA-ABBVIE-6115303

PATIENT
  Sex: Female

DRUGS (1)
  1. SKYRIZI [Suspect]
     Active Substance: RISANKIZUMAB-RZAA
     Indication: Crohn^s disease
     Dosage: LAST ADMIN DATE: 2024
     Route: 042
     Dates: start: 20240326

REACTIONS (13)
  - Hip fracture [Unknown]
  - Crohn^s disease [Unknown]
  - Frustration tolerance decreased [Unknown]
  - Fatigue [Unknown]
  - Osteoporosis [Unknown]
  - Incontinence [Unknown]
  - Eye disorder [Unknown]
  - Fall [Unknown]
  - Arthritis [Unknown]
  - Systemic lupus erythematosus [Unknown]
  - Nausea [Unknown]
  - Vomiting [Unknown]
  - Mobility decreased [Unknown]
